FAERS Safety Report 10047561 (Version 3)
Quarter: 2014Q2

REPORT INFORMATION
  Report Type: Spontaneous
  Country: JP (occurrence: JP)
  Receive Date: 20140331
  Receipt Date: 20140409
  Transmission Date: 20141212
  Serious: Yes (Other)
  Sender: FDA-Public Use
  Company Number: JP-PFIZER INC-2014079737

PATIENT
  Age: 64 Year
  Sex: Male

DRUGS (3)
  1. LIPITOR [Suspect]
     Dosage: 10 MG, 1X/DAY
     Route: 048
  2. CADUET [Suspect]
     Dosage: UNK
     Route: 048
  3. AMLODIN [Concomitant]
     Dosage: UNK
     Route: 048

REACTIONS (3)
  - Renal disorder [Unknown]
  - Blood creatinine increased [Unknown]
  - Blood creatine phosphokinase increased [Unknown]
